FAERS Safety Report 8015874-5 (Version None)
Quarter: 2011Q4

REPORT INFORMATION
  Report Type: 
  Country: None (occurrence: None)
  Receive Date: 20111223
  Receipt Date: 20111115
  Transmission Date: 20120403
  Serious: Yes (Hospitalization)
  Sender: FDA-Public Use
  Company Number: OMPQ-NO-1109S-1038

PATIENT
  Age: 83 Year
  Sex: Female

DRUGS (22)
  1. LOXONIN (LOXOPROFEN SODIUM) [Concomitant]
  2. SIGMART (NICORANDIL) [Concomitant]
  3. LIPITOR [Concomitant]
  4. BASEN (VOGLIBOSE) [Concomitant]
  5. URINORM (BENZBROMARONE) [Concomitant]
  6. TEARBALANCE (HYALURONATE SODIUM) [Concomitant]
  7. ASPIRIN [Concomitant]
  8. OLMESARTAN MEDOXOMIL [Concomitant]
  9. DOXAZOSIN MESYLATE [Concomitant]
  10. SALICYLAMIDE (SALICYLAMIDE) [Concomitant]
  11. PROMETHAZINE METHYLENE DISALICYLATE (PROMETHAZINE METHYLENE DISALICYLA [Concomitant]
  12. PLAVIX [Concomitant]
  13. FLUITRAN (TIRCHLORMETHIAZIDE) [Concomitant]
  14. CAFFEINE (CAFFEINE) [Concomitant]
  15. ACETAMINOPHEN [Concomitant]
  16. CEFZON (CEFDINIR) [Concomitant]
  17. DEPAS (ETIZOLAM) [Concomitant]
  18. PLETAL [Concomitant]
  19. LANSOPRAZOLE [Concomitant]
  20. GLIMICRON (GLICLAZIDE) [Concomitant]
  21. OMNIPAQUE 70 [Suspect]
     Indication: CAROTID ARTERY STENT INSERTION
     Dosage: 113 ML, SINGLE DOSE
     Dates: start: 20110907, end: 20110907
  22. CALBLOCK (AZELNIDIPINE) [Concomitant]

REACTIONS (4)
  - PULMONARY OEDEMA [None]
  - CARDIAC HYPERTROPHY [None]
  - RENAL FAILURE ACUTE [None]
  - FLUID RETENTION [None]
